FAERS Safety Report 13209247 (Version 2)
Quarter: 2017Q1

REPORT INFORMATION
  Report Type: Spontaneous
  Country: HU (occurrence: HU)
  Receive Date: 20170209
  Receipt Date: 20170215
  Transmission Date: 20170428
  Serious: Yes (Death, Hospitalization)
  Sender: FDA-Public Use
  Company Number: HU-PFIZER INC-2017042171

PATIENT
  Age: 69 Year
  Sex: Male

DRUGS (8)
  1. TENSIOMIN [Concomitant]
     Active Substance: CAPTOPRIL
     Dosage: UNK
  2. RAMIPRIL. [Concomitant]
     Active Substance: RAMIPRIL
     Dosage: UNK
  3. BISOPROLOL [Concomitant]
     Active Substance: BISOPROLOL
     Dosage: UNK
  4. THEOSPIREX /00012201/ [Concomitant]
     Dosage: UNK
  5. INLYTA [Suspect]
     Active Substance: AXITINIB
     Indication: CLEAR CELL RENAL CELL CARCINOMA
     Dosage: 5 MG, 2X/DAY
     Dates: start: 20160126, end: 20170126
  6. FRONTIN [Concomitant]
     Active Substance: ALPRAZOLAM
     Dosage: UNK
  7. MEGESIN [Concomitant]
     Dosage: UNK
  8. BONEFOS [Concomitant]
     Active Substance: CLODRONATE DISODIUM
     Dosage: UNK

REACTIONS (3)
  - Neoplasm progression [Fatal]
  - Asthenia [Fatal]
  - Blood pressure increased [Recovering/Resolving]

NARRATIVE: CASE EVENT DATE: 20170127
